FAERS Safety Report 7534429-X (Version None)
Quarter: 2011Q2

REPORT INFORMATION
  Report Type: 
  Country: None (occurrence: None)
  Receive Date: 20110608
  Receipt Date: 20110528
  Transmission Date: 20111010
  Serious: Yes (Other)
  Sender: FDA-Public Use
  Company Number: US-RB-019397-10

PATIENT
  Age: 50 Year
  Sex: Male

DRUGS (6)
  1. SUBOXONE [Suspect]
     Indication: PRODUCT USED FOR UNKNOWN INDICATION
     Dosage: UNKNOWN DOSING DETAILS
     Route: 065
  2. OXYCONTIN [Suspect]
     Indication: PRODUCT USED FOR UNKNOWN INDICATION
     Dosage: UNKNOWN DOSING DETAILS
     Route: 065
  3. SUBOXONE [Suspect]
     Dosage: UNKNOWN DOSING DETAILS
     Route: 065
     Dates: end: 20110526
  4. SUBOXONE [Suspect]
     Indication: PRODUCT USED FOR UNKNOWN INDICATION
     Dosage: UNKNOWN DOSING DETAILS
     Route: 065
  5. SUBOXONE [Suspect]
     Dosage: SUBLINGUAL FILM; DOSING INFORMATION UNKNOWN
     Route: 065
  6. PERCOCET [Suspect]
     Indication: PRODUCT USED FOR UNKNOWN INDICATION
     Dosage: UNKNOWN DOSING DETAILS
     Route: 065

REACTIONS (11)
  - INSOMNIA [None]
  - DEPRESSION [None]
  - DRUG WITHDRAWAL SYNDROME [None]
  - APATHY [None]
  - SUICIDAL IDEATION [None]
  - BACK PAIN [None]
  - SUBSTANCE ABUSE [None]
  - PAIN [None]
  - ASTHENIA [None]
  - FEELING ABNORMAL [None]
  - NAUSEA [None]
